FAERS Safety Report 7493761-9 (Version None)
Quarter: 2011Q2

REPORT INFORMATION
  Report Type: 
  Country: None (occurrence: None)
  Receive Date: 20110520
  Receipt Date: 20110414
  Transmission Date: 20111010
  Serious: Yes (Other)
  Sender: FDA-Public Use
  Company Number: US-ASTRAZENECA-2011SE21768

PATIENT
  Sex: Male

DRUGS (2)
  1. NAPROXEN [Concomitant]
  2. VIMOVO [Suspect]
     Route: 048

REACTIONS (1)
  - ULCER HAEMORRHAGE [None]
